FAERS Safety Report 21052516 (Version 1)
Quarter: 2022Q3

REPORT INFORMATION
  Report Type: Spontaneous
  Country: DE (occurrence: DE)
  Receive Date: 20220707
  Receipt Date: 20220707
  Transmission Date: 20221026
  Serious: Yes (Disabling)
  Sender: FDA-Public Use
  Company Number: DE-DCGMA-22198626

PATIENT
  Age: 75 Year
  Sex: Female

DRUGS (1)
  1. PEMBROLIZUMAB [Suspect]
     Active Substance: PEMBROLIZUMAB
     Indication: Bronchial carcinoma
     Dosage: 200 MILLIGRAM, Q3W
     Dates: start: 202109

REACTIONS (3)
  - Morphoea [Not Recovered/Not Resolved]
  - Raynaud^s phenomenon [Not Recovered/Not Resolved]
  - Collagen disorder [Not Recovered/Not Resolved]

NARRATIVE: CASE EVENT DATE: 20211201
